FAERS Safety Report 18795187 (Version 1)
Quarter: 2021Q1

REPORT INFORMATION
  Report Type: Spontaneous
  Country: US (occurrence: US)
  Receive Date: 20210127
  Receipt Date: 20210127
  Transmission Date: 20210419
  Serious: Yes (Other)
  Sender: FDA-Public Use
  Company Number: US-TEVA-2021-US-1872039

PATIENT
  Age: 25 Year
  Sex: Female

DRUGS (1)
  1. QUININE (TONIC WATER) [Suspect]
     Active Substance: QUININE
     Indication: PRODUCT USED FOR UNKNOWN INDICATION
     Dosage: INTERMITTENT DRINKING
     Route: 048

REACTIONS (1)
  - Thrombotic microangiopathy [Unknown]
